FAERS Safety Report 4502533-6 (Version None)
Quarter: 2004Q3

REPORT INFORMATION
  Report Type: 
  Country: None (occurrence: None)
  Receive Date: 20040928
  Receipt Date: 20040721
  Transmission Date: 20050211
  Serious: No
  Sender: FDA-Public Use
  Company Number: 04P-163-0267703-00

PATIENT
  Age: 54 Year
  Sex: Female

DRUGS (10)
  1. HUMIRA [Suspect]
     Dosage: 40 MG, 1 IN 2 WK, SUBCUTANEOUS
     Route: 058
     Dates: start: 20040401, end: 20040601
  2. HUMIRA [Suspect]
     Dosage: 40 MG, 1 IN 2 WK, SUBCUTANEOUS
     Route: 058
     Dates: start: 20040601, end: 20040720
  3. HUMIRA [Suspect]
     Dosage: 40 MG, 1 IN 2 WK, SUBCUTANEOUS
     Route: 058
     Dates: start: 20040721
  4. GLUCOPHAGE [Concomitant]
  5. GLIMEPIRIDE [Concomitant]
  6. LEVOTHYROXINE SODIUM [Concomitant]
  7. PANTOPRAZOLE [Concomitant]
  8. ATORVASTATIN CALCIUM [Concomitant]
  9. ZETIA [Concomitant]
  10. INSULIN [Concomitant]

REACTIONS (4)
  - ARTHRITIS [None]
  - DRUG INEFFECTIVE [None]
  - INJECTION SITE BURNING [None]
  - OEDEMA PERIPHERAL [None]
